FAERS Safety Report 9772742 (Version 1)
Quarter: 2013Q4

REPORT INFORMATION
  Report Type: Spontaneous
  Country: US (occurrence: None)
  Receive Date: 20131218
  Receipt Date: 20131218
  Transmission Date: 20140711
  Serious: Yes (Hospitalization)
  Sender: FDA-Public Use
  Company Number: None

PATIENT
  Age: 80 Year
  Sex: Male
  Weight: 80.1 kg

DRUGS (2)
  1. ASPIRIN [Suspect]
     Indication: CEREBRAL ARTERY STENOSIS
     Route: 048
     Dates: start: 20010129, end: 20131120
  2. ASPIRIN [Suspect]
     Route: 048

REACTIONS (6)
  - Melaena [None]
  - Presyncope [None]
  - Fall [None]
  - Gastric ulcer [None]
  - Anaemia [None]
  - Gastric haemorrhage [None]
